FAERS Safety Report 9868811 (Version 2)
Quarter: 2014Q1

REPORT INFORMATION
  Report Type: Spontaneous
  Country: PT (occurrence: PT)
  Receive Date: 20140204
  Receipt Date: 20140207
  Transmission Date: 20141002
  Serious: Yes (Death)
  Sender: FDA-Public Use
  Company Number: PT-PFIZER INC-2014028958

PATIENT
  Age: 45 Year
  Sex: Female
  Weight: 56 kg

DRUGS (9)
  1. SUTENT [Suspect]
     Indication: THYROID CANCER METASTATIC
     Dosage: 50 MG 1X/DAY (28 DAYS ON, 14 DAYS OFF)
     Route: 048
     Dates: start: 20130308
  2. SUTENT [Suspect]
     Dosage: UNK
  3. SUTENT [Suspect]
     Dosage: UNK
  4. SUTENT [Suspect]
     Dosage: UNK
     Dates: end: 20140127
  5. PARACETAMOL [Concomitant]
     Indication: PAIN
     Dosage: 500 MG, 1X/DAY
     Route: 048
     Dates: start: 20140122, end: 20140123
  6. TRAMADOL [Concomitant]
     Indication: PAIN
     Dosage: 100 MG, DAILY
     Route: 048
     Dates: start: 20130101, end: 20140128
  7. THYREX [Concomitant]
     Dosage: 0.15 MG, DAILY
     Route: 048
     Dates: start: 20020101, end: 20140128
  8. GABAPENTIN [Concomitant]
     Indication: PAIN
     Dosage: 400 MG, DAILY
     Route: 048
     Dates: start: 20130101, end: 20140128
  9. AMITRIPTYLINE [Concomitant]
     Dosage: 25 MG, DAILY

REACTIONS (3)
  - Acute hepatic failure [Fatal]
  - Influenza [Unknown]
  - Off label use [Unknown]
